FAERS Safety Report 8383678 (Version 2)
Quarter: 2012Q4

REPORT INFORMATION
  Report Type: 
  Country: US (occurrence: US)
  Receive Date: 20120201
  Receipt Date: 20121025
  Transmission Date: 20130627
  Serious: Yes (Hospitalization, Other)
  Sender: FDA-Public Use
  Company Number: US-PFIZER INC-2012023452

PATIENT
  Age: 55 Year
  Sex: Female
  Weight: 108 kg

DRUGS (9)
  1. LYRICA [Suspect]
     Indication: FALL
     Dosage: 75 mg, daily
     Dates: start: 201201
  2. LYRICA [Suspect]
     Indication: HERPES ZOSTER
     Dosage: 150 mg, daily
     Dates: start: 201201
  3. LYRICA [Suspect]
     Dosage: 225 mg, daily
     Dates: start: 201201
  4. LYRICA [Suspect]
     Dosage: UNK
     Dates: start: 201201, end: 20120112
  5. QUINAPRIL/HYDROCHLOROTHIAZIDE [Concomitant]
     Indication: HYPERTENSION
     Dosage: 20/12.5 mg, daily
  6. TYLENOL [Concomitant]
     Indication: ARTHRITIS
     Dosage: UNK
  7. TYLENOL WITH CODEINE [Concomitant]
     Indication: ARTHRITIS
     Dosage: UNK
  8. CLARITIN D [Concomitant]
     Indication: SINUS DISORDER
     Dosage: 10/200 mg
  9. SINGULAIR [Concomitant]
     Indication: SINUS DISORDER
     Dosage: 10 mg, daily

REACTIONS (3)
  - Blood glucose increased [Not Recovered/Not Resolved]
  - Eye disorder [Not Recovered/Not Resolved]
  - Pollakiuria [Not Recovered/Not Resolved]
